FAERS Safety Report 18467624 (Version 1)
Quarter: 2020Q4

REPORT INFORMATION
  Report Type: Spontaneous
  Country: US (occurrence: US)
  Receive Date: 20201104
  Receipt Date: 20201104
  Transmission Date: 20210114
  Serious: No
  Sender: FDA-Public Use
  Company Number: None

PATIENT
  Age: 29 Year
  Sex: Male

DRUGS (1)
  1. ZOFRAN [Suspect]
     Active Substance: ONDANSETRON HYDROCHLORIDE
     Indication: NAUSEA
     Dosage: ?          OTHER FREQUENCY:Q4H PRN;?
     Route: 042
     Dates: start: 20201103, end: 20201103

REACTIONS (1)
  - Pruritus [None]

NARRATIVE: CASE EVENT DATE: 20201103
